FAERS Safety Report 9456440 (Version 1)
Quarter: 2013Q3

REPORT INFORMATION
  Report Type: Spontaneous
  Country: US (occurrence: US)
  Receive Date: 20130813
  Receipt Date: 20130813
  Transmission Date: 20140515
  Serious: Yes (Other)
  Sender: FDA-Public Use
  Company Number: US-INCYTE CORPORATION-2013IN000570

PATIENT
  Age: 62 Year
  Sex: Male
  Weight: 128.35 kg

DRUGS (8)
  1. JAKAFI [Suspect]
     Indication: ESSENTIAL THROMBOCYTHAEMIA
     Dosage: 10 MG, BID
     Route: 048
     Dates: start: 20121023
  2. SANDOSTATIN [Concomitant]
     Dosage: UNK,UNK,UNK
     Dates: start: 20120601
  3. OMEPRAZOLE [Concomitant]
  4. FLOMAX [Concomitant]
  5. NORVASC [Concomitant]
  6. BYSTOLIC [Concomitant]
  7. WELCHOL [Concomitant]
  8. MICARDIS [Concomitant]

REACTIONS (4)
  - Hepatic lesion [Not Recovered/Not Resolved]
  - Alanine aminotransferase increased [Not Recovered/Not Resolved]
  - Blood alkaline phosphatase increased [Not Recovered/Not Resolved]
  - Aspartate aminotransferase increased [Not Recovered/Not Resolved]
